FAERS Safety Report 7395851-8 (Version None)
Quarter: 2011Q2

REPORT INFORMATION
  Report Type: 
  Country: None (occurrence: None)
  Receive Date: 20110405
  Receipt Date: 20110328
  Transmission Date: 20111010
  Serious: Yes (Other)
  Sender: FDA-Public Use
  Company Number: US-BAYER-2011-028747

PATIENT
  Sex: Female

DRUGS (8)
  1. CORTISONE [Concomitant]
  2. UNCODEABLE ^UNCLASSIFIABLE^ [Concomitant]
     Indication: PAIN IN EXTREMITY
     Dosage: UNK
     Dates: start: 20110301
  3. ALEVE (CAPLET) [Suspect]
     Indication: PAIN IN EXTREMITY
     Dosage: DAILY DOSE 440 MG
     Dates: start: 20110301, end: 20110301
  4. ALEVE (CAPLET) [Suspect]
     Dosage: DAILY DOSE 220 MG
     Dates: start: 20110301
  5. TELMISARTAN [Concomitant]
     Dosage: DAILY
  6. WARFARIN SODIUM [Concomitant]
     Dosage: DAILY
  7. DRONEDARONE [Suspect]
     Indication: ATRIAL FIBRILLATION
     Dosage: 400 MG, BID
     Dates: start: 20101201
  8. ATENOLOL [Concomitant]
     Dosage: 25 MG, HS

REACTIONS (3)
  - DYSPNOEA [None]
  - FATIGUE [None]
  - ATRIAL FIBRILLATION [None]
